FAERS Safety Report 24112558 (Version 1)
Quarter: 2024Q3

REPORT INFORMATION
  Report Type: Spontaneous
  Country: DE (occurrence: None)
  Receive Date: 20240719
  Receipt Date: 20240719
  Transmission Date: 20241017
  Serious: Yes (Other)
  Sender: ASTRAZENECA
  Company Number: 2024A162863

PATIENT
  Sex: Male

DRUGS (3)
  1. OLAPARIB [Suspect]
     Active Substance: OLAPARIB
     Indication: BRCA2 gene mutation
     Route: 048
     Dates: start: 202205
  2. ABIRATERONE [Concomitant]
     Active Substance: ABIRATERONE
     Dates: start: 202306
  3. PREDNISOLONE [Concomitant]
     Active Substance: PREDNISOLONE
     Dates: start: 202306

REACTIONS (3)
  - Metastases to spine [Unknown]
  - Metastases to bone [Unknown]
  - Malignant neoplasm oligoprogression [Unknown]
